FAERS Safety Report 16450053 (Version 1)
Quarter: 2019Q3

REPORT INFORMATION
  Report Type: Spontaneous
  Country: US (occurrence: US)
  Receive Date: 20190618
  Receipt Date: 20190618
  Transmission Date: 20191004
  Serious: Yes (Death)
  Sender: FDA-Public Use
  Company Number: None

PATIENT
  Age: 77 Year
  Sex: Female

DRUGS (7)
  1. TACROLIMUS. [Suspect]
     Active Substance: TACROLIMUS
     Indication: RENAL TRANSPLANT
     Dosage: ?          OTHER FREQUENCY:3MG QAM, 2MG QPM;?
     Route: 048
     Dates: start: 20140610, end: 20190606
  2. RANITIDINE, SMZ-TMP [Concomitant]
  3. LEVOTHYROXIN, MAG-G [Concomitant]
  4. PREDNISONE, PROLIA [Concomitant]
  5. METOPROL, MYCOPHENOLIC [Concomitant]
  6. ALLOPURINOL, ASPIRIN [Concomitant]
  7. BACTRIM, FERROUS SULF [Concomitant]

REACTIONS (1)
  - Death [None]

NARRATIVE: CASE EVENT DATE: 20190606
